FAERS Safety Report 9841504 (Version 1)
Quarter: 2020Q3

REPORT INFORMATION
  Report Type: Report from Study
  Country: US (occurrence: US)
  Receive Date: 20140124
  Receipt Date: 20140124
  Transmission Date: 20201104
  Serious: Yes (Hospitalization)
  Sender: FDA-Public Use
  Company Number: US-CELGENEUS-163-21880-14012877

PATIENT
  Age: 62 Year
  Sex: Female
  Weight: 85.4 kg

DRUGS (4)
  1. REVLIMID [Suspect]
     Active Substance: LENALIDOMIDE
     Dosage: 15 MILLIGRAM
     Route: 048
     Dates: start: 20131231, end: 20140105
  2. CEDIRANIB. [Suspect]
     Active Substance: CEDIRANIB
     Indication: THYROID CANCER
     Dosage: 30 MILLIGRAM
     Route: 048
     Dates: start: 20130716
  3. REVLIMID [Suspect]
     Active Substance: LENALIDOMIDE
     Indication: THYROID CANCER
     Dosage: 15 MILLIGRAM
     Route: 048
     Dates: start: 20130716
  4. CEDIRANIB. [Suspect]
     Active Substance: CEDIRANIB
     Dosage: 30 MILLIGRAM
     Route: 048
     Dates: start: 20131231, end: 20140105

REACTIONS (1)
  - Hypocalcaemia [Not Recovered/Not Resolved]

NARRATIVE: CASE EVENT DATE: 20140106
